FAERS Safety Report 8467345 (Version 2)
Quarter: 2012Q4

REPORT INFORMATION
  Report Type: 
  Country: GB (occurrence: GB)
  Receive Date: 20120320
  Receipt Date: 20121016
  Transmission Date: 20130627
  Serious: Yes (Other)
  Sender: FDA-Public Use
  Company Number: GB-PFIZER INC-2012068270

PATIENT
  Age: 23 Year
  Sex: Male
  Weight: 90 kg

DRUGS (3)
  1. GABAPENTIN [Suspect]
     Indication: NEURALGIA
     Dosage: 50 mg daily at night
     Route: 048
     Dates: start: 20120227, end: 20120229
  2. EPILIM CHRONO [Concomitant]
     Indication: EPILEPSY
     Dosage: 500 mg in the morning, 300 mg at night
     Route: 048
     Dates: start: 2009
  3. TRAMADOL [Concomitant]
     Indication: PAIN
     Dosage: 50 mg 3x/day
     Route: 048
     Dates: start: 20120220

REACTIONS (1)
  - VIIth nerve paralysis [Recovered/Resolved]
